FAERS Safety Report 17101364 (Version 1)
Quarter: 2019Q4

REPORT INFORMATION
  Report Type: Spontaneous
  Country: DE (occurrence: DE)
  Receive Date: 20191202
  Receipt Date: 20191202
  Transmission Date: 20200122
  Serious: Yes (Hospitalization)
  Sender: FDA-Public Use
  Company Number: NVSC2019DE051289

PATIENT
  Age: 14 Year
  Sex: Female
  Weight: 40 kg

DRUGS (6)
  1. URSOFALK [Concomitant]
     Active Substance: URSODIOL
     Indication: LIVER TRANSPLANT
     Dosage: 500 MG, QD, DAILY DOSE: 500 MG MILLGRAM(S) EVERY DAYS 2 SEPARATED DOSES
     Route: 065
     Dates: start: 2012
  2. SANDIMMUN [Suspect]
     Active Substance: CYCLOSPORINE
     Dosage: 160 MG, QD, DAILY DOSE: 160 MG MILLGRAM(S) EVERY DAYS 2 SEPARATED DOSES
     Route: 048
     Dates: start: 20181122
  3. OMEPRAZOL [Concomitant]
     Active Substance: OMEPRAZOLE
     Indication: GASTROOESOPHAGEAL REFLUX DISEASE
     Dosage: 40 MG, DAILY DOSE: 40 MG MILLGRAM(S) EVERY AS NECESSARY 2 SEPARATED DOSES
     Route: 048
     Dates: start: 2010
  4. SANDIMMUN [Suspect]
     Active Substance: CYCLOSPORINE
     Indication: LIVER TRANSPLANT
     Dosage: 180 MG, QD, DAILY DOSE: 180 MG MILLGRAM(S) EVERY DAYS 2 SEPARATED DOSES
     Route: 048
     Dates: start: 201112
  5. CITRULLINE [Concomitant]
     Active Substance: CITRULLINE
     Indication: ORNITHINE TRANSCARBAMOYLASE DEFICIENCY
     Dosage: UNK, 3-2-3
     Route: 065
     Dates: start: 201105
  6. VITAMIN D [Concomitant]
     Active Substance: VITAMIN D NOS
     Indication: PRODUCT USED FOR UNKNOWN INDICATION
     Dosage: 14000 IU, DAILY DOSE: 14000 IU INTERNATIONAL UNIT(S) EVERY 14 DAYS
     Route: 048
     Dates: start: 2016

REACTIONS (2)
  - Decreased appetite [Recovered/Resolved]
  - Headache [Recovered/Resolved]

NARRATIVE: CASE EVENT DATE: 20190522
